FAERS Safety Report 4630998-8 (Version None)
Quarter: 2005Q2

REPORT INFORMATION
  Report Type: 
  Country: None (occurrence: None)
  Receive Date: 20050406
  Receipt Date: 20050322
  Transmission Date: 20051028
  Serious: Yes (Other)
  Sender: FDA-Public Use
  Company Number: USA050393826

PATIENT
  Age: 52 Year
  Sex: Female

DRUGS (6)
  1. CYMBALTA [Suspect]
     Dosage: 60 MG DAY
     Dates: start: 20050201
  2. XANAX (ALPRAZOLAM DUM) [Concomitant]
  3. SINGULAIR (MONTELEUKAST) [Concomitant]
  4. FLUTICASONE PROPIONATE W/SALMETEROL [Concomitant]
  5. FOLIC ACID [Concomitant]
  6. ESTROGENS CONJUGATED [Concomitant]

REACTIONS (5)
  - ABDOMINAL DISTENSION [None]
  - ABDOMINAL PAIN [None]
  - ALANINE AMINOTRANSFERASE INCREASED [None]
  - ASPARTATE AMINOTRANSFERASE INCREASED [None]
  - HEPATOMEGALY [None]
